FAERS Safety Report 25462644 (Version 2)
Quarter: 2025Q2

REPORT INFORMATION
  Report Type: Report from Study
  Country: US (occurrence: US)
  Receive Date: 20250620
  Receipt Date: 20250623
  Transmission Date: 20250716
  Serious: Yes (Hospitalization, Other)
  Sender: ABBVIE
  Company Number: US-ABBVIE-6329175

PATIENT
  Age: 45 Year
  Sex: Female
  Weight: 62 kg

DRUGS (3)
  1. SKYRIZI [Suspect]
     Active Substance: RISANKIZUMAB-RZAA
     Indication: Crohn^s disease
     Route: 058
     Dates: start: 20240101, end: 20250605
  2. SKYRIZI [Suspect]
     Active Substance: RISANKIZUMAB-RZAA
     Route: 058
     Dates: start: 20250613
  3. PREDNISONE [Concomitant]
     Active Substance: PREDNISONE
     Indication: Product used for unknown indication

REACTIONS (13)
  - Abdominal abscess [Recovered/Resolved]
  - Injection site papule [Recovered/Resolved]
  - Device issue [Not Recovered/Not Resolved]
  - Stenosis [Recovered/Resolved]
  - Obstruction [Recovered/Resolved]
  - Influenza [Recovered/Resolved]
  - Intestinal fistula [Recovered/Resolved]
  - Ileal stenosis [Unknown]
  - Small intestinal stenosis [Unknown]
  - Injection site vesicles [Unknown]
  - Crohn^s disease [Unknown]
  - Pain [Recovered/Resolved]
  - Pain [Not Recovered/Not Resolved]

NARRATIVE: CASE EVENT DATE: 20240101
